FAERS Safety Report 5929553-9 (Version None)
Quarter: 2008Q4

REPORT INFORMATION
  Report Type: 
  Country: None (occurrence: None)
  Receive Date: 20081024
  Receipt Date: 20081022
  Transmission Date: 20090506
  Serious: Yes (Hospitalization)
  Sender: FDA-Public Use
  Company Number: B0543067A

PATIENT
  Age: 96 Year
  Sex: Male

DRUGS (4)
  1. RYTMONORM [Suspect]
     Indication: DRUG USE FOR UNKNOWN INDICATION
     Dosage: 3UD PER DAY
     Route: 048
     Dates: start: 20080401, end: 20081004
  2. LASIX [Concomitant]
     Route: 048
     Dates: start: 20070101, end: 20081004
  3. MICARDIS [Concomitant]
     Route: 048
     Dates: start: 20070101, end: 20081004
  4. ENAPREN [Concomitant]
     Route: 048
     Dates: start: 20070101, end: 20081004

REACTIONS (2)
  - SYNCOPE [None]
  - TRIFASCICULAR BLOCK [None]
